FAERS Safety Report 25448602 (Version 1)
Quarter: 2025Q2

REPORT INFORMATION
  Report Type: Spontaneous
  Country: NL (occurrence: NL)
  Receive Date: 20250618
  Receipt Date: 20250618
  Transmission Date: 20250717
  Serious: Yes (Hospitalization)
  Sender: ACCORD
  Company Number: None

PATIENT
  Age: 57 Year
  Sex: Male
  Weight: 95.6 kg

DRUGS (4)
  1. CAPECITABINE [Suspect]
     Active Substance: CAPECITABINE
     Indication: Oesophageal carcinoma
     Dosage: 2DD 3 PIECES, 2 WEEKS FOLLOWED BY 1 WEEK OF REST
     Dates: start: 20241108
  2. NIVOLUMAB [Suspect]
     Active Substance: NIVOLUMAB
     Indication: Oesophageal carcinoma
     Dosage: 1X PER 3 WEEKS 360MG
     Dates: start: 20241108
  3. CEFTRIAXONE [Concomitant]
     Active Substance: CEFTRIAXONE
  4. CIPROFLOXACIN [Concomitant]
     Active Substance: CIPROFLOXACIN

REACTIONS (2)
  - Pneumonitis [Recovering/Resolving]
  - Organising pneumonia [Recovering/Resolving]
